FAERS Safety Report 9989909 (Version 1)
Quarter: 2014Q1

REPORT INFORMATION
  Report Type: Spontaneous
  Country: US (occurrence: None)
  Receive Date: 20140123
  Receipt Date: 20140123
  Transmission Date: 20141002
  Serious: Yes (Hospitalization)
  Sender: FDA-Public Use
  Company Number: UTC-038046

PATIENT
  Age: 73 Year
  Sex: Female
  Weight: 56.4 kg

DRUGS (4)
  1. REMODULIN (2.5 MILLIGRAM/MILLILITERS, INJECTION FOR INFUSION)(TREPROSTINIL SODIUM) [Suspect]
     Indication: PULMONARY ARTERIAL HYPERTENSION
     Dosage: 78.912 UG/KG (0.0548 UG/KG,1 IN 1 MIN),INTRAVENOUS DRIP?
     Route: 041
     Dates: start: 20100930
  2. ADCIRCA (TADALAFIL)(UNKNOWN) [Concomitant]
  3. LETAIRIS (AMBRISENTAN)(UNKNOWN) [Concomitant]
  4. WARFARIN (UNKNOWN) [Concomitant]

REACTIONS (1)
  - Injection site infection [None]
